FAERS Safety Report 12828300 (Version 1)
Quarter: 2016Q4

REPORT INFORMATION
  Report Type: Spontaneous
  Country: US (occurrence: US)
  Receive Date: 20161007
  Receipt Date: 20161007
  Transmission Date: 20170207
  Serious: Yes (Other)
  Sender: FDA-Public Use
  Company Number: US-ASTRAZENECA-2016SF04873

PATIENT
  Sex: Male

DRUGS (1)
  1. BRILINTA [Suspect]
     Active Substance: TICAGRELOR
     Indication: ACUTE CORONARY SYNDROME
     Route: 048

REACTIONS (7)
  - Rib fracture [Unknown]
  - Pneumothorax [Unknown]
  - Accident [Unknown]
  - Clavicle fracture [Unknown]
  - Sternal fracture [Unknown]
  - Muscle rupture [Unknown]
  - Drug dose omission [Unknown]
